FAERS Safety Report 9922637 (Version 1)
Quarter: 2014Q1

REPORT INFORMATION
  Report Type: Spontaneous
  Country: US (occurrence: US)
  Receive Date: 20140225
  Receipt Date: 20140225
  Transmission Date: 20141002
  Serious: Yes (Other)
  Sender: FDA-Public Use
  Company Number: US-BAXTER-2014BAX008189

PATIENT
  Age: 33 Year
  Sex: Female

DRUGS (3)
  1. GAMMAGARD LIQUID [Suspect]
     Indication: IMMUNODEFICIENCY COMMON VARIABLE
     Route: 042
  2. COPPER REPLACEMENT [Concomitant]
     Indication: PRODUCT USED FOR UNKNOWN INDICATION
     Route: 065
  3. VITAMIN B12 SUPPLEMENTATION [Concomitant]
     Indication: PRODUCT USED FOR UNKNOWN INDICATION
     Route: 065

REACTIONS (8)
  - Neuropathy peripheral [Unknown]
  - Ataxia [Unknown]
  - Hyporeflexia [Unknown]
  - Sensory loss [Unknown]
  - Temperature perception test abnormal [Unknown]
  - Decreased vibratory sense [Unknown]
  - Loss of proprioception [Unknown]
  - Anaemia macrocytic [Unknown]
